FAERS Safety Report 24738307 (Version 1)
Quarter: 2024Q4

REPORT INFORMATION
  Report Type: Spontaneous
  Country: US (occurrence: None)
  Receive Date: 20241216
  Receipt Date: 20241216
  Transmission Date: 20250115
  Serious: No
  Sender: Public
  Company Number: None

PATIENT
  Age: 73 Year

DRUGS (1)
  1. TAVNEOS [Suspect]
     Active Substance: AVACOPAN
     Indication: Antineutrophil cytoplasmic antibody
     Dosage: 30 MG QD PO
     Route: 048

REACTIONS (3)
  - Cardiac disorder [None]
  - Renal disorder [None]
  - Dry mouth [None]

NARRATIVE: CASE EVENT DATE: 20241202
